FAERS Safety Report 8890746 (Version 1)
Quarter: 2012Q4

REPORT INFORMATION
  Report Type: 
  Country: JP (occurrence: JP)
  Receive Date: 20121107
  Receipt Date: 20121107
  Transmission Date: 20130627
  Serious: Yes (Other)
  Sender: FDA-Public Use
  Company Number: JP-ASTELLAS-2012JP010466

PATIENT
  Age: 9 Year
  Sex: Male

DRUGS (11)
  1. PROGRAF [Suspect]
     Indication: LIVER TRANSPLANT
     Dosage: UNK
     Route: 065
  2. PROGRAF [Suspect]
     Route: 065
  3. PROGRAF [Suspect]
     Route: 065
  4. CELLCEPT                           /01275102/ [Concomitant]
     Dosage: 1000 mg, Unknown/D
     Route: 048
  5. CELLCEPT                           /01275102/ [Concomitant]
     Dosage: 1000 mg, Unknown/D
     Route: 048
  6. CELLCEPT                           /01275102/ [Concomitant]
     Dosage: 1000 mg, Unknown/D
     Route: 048
  7. METHYLPREDNISOLONE [Concomitant]
     Route: 065
  8. METHYLPREDNISOLONE [Concomitant]
     Route: 065
  9. PLASMA [Concomitant]
     Indication: ASCITES
     Route: 065
  10. ALBUMIN [Concomitant]
     Indication: ASCITES
     Route: 065
  11. DALTEPARIN SODIUM [Concomitant]
     Dosage: UNK
     Route: 065

REACTIONS (6)
  - Drug ineffective [Unknown]
  - Liver transplant rejection [Recovering/Resolving]
  - Hepatic vein occlusion [Recovering/Resolving]
  - Venoocclusive liver disease [Recovering/Resolving]
  - Device related infection [Unknown]
  - Staphylococcal sepsis [Unknown]
